FAERS Safety Report 6236706-1 (Version None)
Quarter: 2009Q2

REPORT INFORMATION
  Report Type: 
  Country: None (occurrence: None)
  Receive Date: 20090619
  Receipt Date: 20090410
  Transmission Date: 20091009
  Serious: No
  Sender: FDA-Public Use
  Company Number: US-ASTRAZENECA-2009UW09049

PATIENT
  Age: 82 Year
  Sex: Female
  Weight: 70.3 kg

DRUGS (13)
  1. ATACAND [Suspect]
     Indication: HYPERTENSION
     Dosage: TAKING HALF OF A 32MG TABLET  FOR A DAILY DOSE OF 16MG
     Route: 048
     Dates: start: 20090326
  2. ASMACORT [Concomitant]
  3. SEREVENT [Concomitant]
  4. ATROVENT [Concomitant]
  5. SYNTHROID [Concomitant]
  6. PROCARDIA XL [Concomitant]
  7. COUMADIN [Concomitant]
  8. MEDROL [Concomitant]
  9. KLONOPIN [Concomitant]
  10. GLUCATROL XL [Concomitant]
  11. LEXAPRO [Concomitant]
  12. PROTONIX [Concomitant]
  13. CELEBREX [Concomitant]

REACTIONS (1)
  - PERIPHERAL COLDNESS [None]
